FAERS Safety Report 9474325 (Version 2)
Quarter: 2013Q3

REPORT INFORMATION
  Report Type: Spontaneous
  Country: CL (occurrence: CL)
  Receive Date: 20130823
  Receipt Date: 20130823
  Transmission Date: 20140515
  Serious: Yes (Other)
  Sender: FDA-Public Use
  Company Number: CL-BAYER-2013-066518

PATIENT
  Sex: Female

DRUGS (3)
  1. MIRENA [Suspect]
     Dosage: 20 MCG/24HR, CONT
     Route: 015
     Dates: start: 20120831
  2. IRON COMPLEX [Concomitant]
  3. OMEPRAZOL [Concomitant]

REACTIONS (13)
  - Endometritis [Recovered/Resolved]
  - Pain [Recovered/Resolved]
  - Uterine spasm [Recovered/Resolved]
  - Endometritis [Recovered/Resolved]
  - Pain [Recovered/Resolved]
  - Uterine spasm [Recovered/Resolved]
  - Genital haemorrhage [Recovered/Resolved]
  - Inflammation [Not Recovered/Not Resolved]
  - Pain [Not Recovered/Not Resolved]
  - Uterine spasm [Not Recovered/Not Resolved]
  - Genital haemorrhage [Not Recovered/Not Resolved]
  - Genital haemorrhage [Recovered/Resolved]
  - Menstruation irregular [None]
